FAERS Safety Report 23069111 (Version 11)
Quarter: 2023Q4

REPORT INFORMATION
  Report Type: Spontaneous
  Country: CA (occurrence: CA)
  Receive Date: 20231016
  Receipt Date: 20231219
  Transmission Date: 20240109
  Serious: Yes (Other)
  Sender: FDA-Public Use
  Company Number: CA-PFIZER INC-PV202300104981

PATIENT
  Age: 62 Year
  Sex: Male
  Weight: 47.3 kg

DRUGS (10)
  1. ZIRABEV [Suspect]
     Active Substance: BEVACIZUMAB-BVZR
     Dosage: 5MG/KG, EVERY 2 WEEKS
     Route: 042
     Dates: start: 20230609
  2. ZIRABEV [Suspect]
     Active Substance: BEVACIZUMAB-BVZR
     Dosage: 236.5 MG
     Route: 042
     Dates: start: 20230623
  3. ZIRABEV [Suspect]
     Active Substance: BEVACIZUMAB-BVZR
     Dosage: 239 MG
     Route: 042
     Dates: start: 20230707
  4. ZIRABEV [Suspect]
     Active Substance: BEVACIZUMAB-BVZR
     Dosage: 235 MG
     Route: 042
     Dates: start: 20230721
  5. ZIRABEV [Suspect]
     Active Substance: BEVACIZUMAB-BVZR
     Dosage: 227 MG
     Route: 042
     Dates: start: 20230804
  6. ZIRABEV [Suspect]
     Active Substance: BEVACIZUMAB-BVZR
     Dosage: 5 MG/KG, EVERY 2 WEEKS
     Route: 042
  7. ZIRABEV [Suspect]
     Active Substance: BEVACIZUMAB-BVZR
     Dosage: 245 MG
     Route: 042
     Dates: start: 20231018
  8. ZIRABEV [Suspect]
     Active Substance: BEVACIZUMAB-BVZR
     Dosage: 245 MG
     Route: 042
     Dates: start: 20231102
  9. ZIRABEV [Suspect]
     Active Substance: BEVACIZUMAB-BVZR
     Dosage: 245 MG
     Route: 042
     Dates: start: 20231116
  10. ZIRABEV [Suspect]
     Active Substance: BEVACIZUMAB-BVZR
     Dosage: 245 MG
     Route: 042
     Dates: start: 20231130

REACTIONS (10)
  - Malignant neoplasm oligoprogression [Unknown]
  - Neoplasm progression [Unknown]
  - Liver disorder [Unknown]
  - Blood pressure diastolic decreased [Recovered/Resolved]
  - Blood pressure fluctuation [Unknown]
  - Bacterial infection [Recovered/Resolved]
  - Tooth abscess [Unknown]
  - Weight increased [Unknown]
  - Weight decreased [Unknown]
  - Blood pressure increased [Unknown]

NARRATIVE: CASE EVENT DATE: 20230101
